FAERS Safety Report 12041655 (Version 3)
Quarter: 2016Q1

REPORT INFORMATION
  Report Type: Spontaneous
  Country: GB (occurrence: GB)
  Receive Date: 20160208
  Receipt Date: 20160322
  Transmission Date: 20160526
  Serious: Yes (Life-Threatening, Hospitalization)
  Sender: FDA-Public Use
  Company Number: GB-ROCHE-1608223

PATIENT
  Sex: Female

DRUGS (8)
  1. HERCEPTIN [Suspect]
     Active Substance: TRASTUZUMAB
     Indication: PRODUCT USED FOR UNKNOWN INDICATION
     Dosage: CYCLE 5TH ON 02/OCT/2015
     Route: 058
  2. OXALIPLATIN. [Suspect]
     Active Substance: OXALIPLATIN
     Indication: PRODUCT USED FOR UNKNOWN INDICATION
     Route: 065
  3. HERCEPTIN [Suspect]
     Active Substance: TRASTUZUMAB
     Dosage: 300 MG/250 MLS
     Route: 058
     Dates: start: 20150904
  4. XELODA [Suspect]
     Active Substance: CAPECITABINE
     Route: 048
     Dates: start: 20150904
  5. XELODA [Suspect]
     Active Substance: CAPECITABINE
     Indication: PRODUCT USED FOR UNKNOWN INDICATION
     Dosage: CYCLE 5TH ON 02/OCT/2015
     Route: 048
  6. CISPLATIN. [Suspect]
     Active Substance: CISPLATIN
     Indication: PRODUCT USED FOR UNKNOWN INDICATION
     Dosage: CYCLE 5TH ON 02/OCT/2015
     Route: 065
  7. CISPLATIN. [Suspect]
     Active Substance: CISPLATIN
     Dosage: 118 MG/1000 MLS
     Route: 065
     Dates: start: 20150904
  8. HERCEPTIN [Suspect]
     Active Substance: TRASTUZUMAB
     Indication: PRODUCT USED FOR UNKNOWN INDICATION
     Dosage: CYCLE 5.
     Route: 042

REACTIONS (54)
  - Feeling drunk [Unknown]
  - Abdominal distension [Unknown]
  - Bedridden [Unknown]
  - Fatigue [Unknown]
  - Pyrexia [Unknown]
  - Musculoskeletal pain [Unknown]
  - Dyspepsia [Unknown]
  - Constipation [Recovered/Resolved]
  - Hiccups [Unknown]
  - Vomiting [Unknown]
  - Body temperature increased [Unknown]
  - Nasopharyngitis [Unknown]
  - Asthenia [Unknown]
  - Tinnitus [Recovered/Resolved]
  - Tearfulness [Unknown]
  - Dehydration [Unknown]
  - Depressed mood [Unknown]
  - Urinary tract infection [Unknown]
  - Hyperaesthesia [Unknown]
  - Gastrooesophageal reflux disease [Unknown]
  - Sepsis [Unknown]
  - Dysgeusia [Unknown]
  - Cystitis [Unknown]
  - Mobility decreased [Unknown]
  - Pain in extremity [Unknown]
  - Anaemia [Unknown]
  - Perforation [Unknown]
  - Dizziness [Unknown]
  - Motion sickness [Unknown]
  - Nausea [Unknown]
  - White blood cell count decreased [Unknown]
  - Steroid withdrawal syndrome [Unknown]
  - Weight decreased [Unknown]
  - Neuropathy peripheral [Unknown]
  - Malaise [Unknown]
  - Feeling abnormal [Unknown]
  - Tremor [Unknown]
  - Pain [Unknown]
  - Headache [Unknown]
  - Retching [Unknown]
  - Abdominal pain upper [Recovered/Resolved]
  - Palmar-plantar erythrodysaesthesia syndrome [Unknown]
  - Diarrhoea [Unknown]
  - Dyspnoea exertional [Unknown]
  - Hypophagia [Unknown]
  - Flatulence [Unknown]
  - Haematemesis [Unknown]
  - Emotional disorder [Unknown]
  - Anxiety [Unknown]
  - Mouth ulceration [Unknown]
  - Eructation [Unknown]
  - Decreased appetite [Unknown]
  - Dry mouth [Unknown]
  - Discomfort [Unknown]
